FAERS Safety Report 8471170-3 (Version None)
Quarter: 2012Q2

REPORT INFORMATION
  Report Type: 
  Country: None (occurrence: None)
  Receive Date: 20120621
  Receipt Date: 20120613
  Transmission Date: 20120825
  Serious: Yes (Life-Threatening, Hospitalization, Other)
  Sender: FDA-Public Use
  Company Number: 2012MA004040

PATIENT
  Age: 41 Year
  Sex: Female

DRUGS (9)
  1. CLOZARIL [Suspect]
     Indication: INTENTIONAL SELF-INJURY
     Dosage: 500 MG;PO
     Route: 048
  2. LITHIUM CARBONATE [Concomitant]
  3. SIMVASTATIN [Concomitant]
  4. DIAZEPAM [Suspect]
  5. VENLAFAXINE [Concomitant]
  6. LANSOPRAZOLE [Concomitant]
  7. VALPROIC ACID [Concomitant]
  8. METFORMIN HCL [Concomitant]
  9. PIOGLITAZONE [Concomitant]

REACTIONS (7)
  - SOMNOLENCE [None]
  - PNEUMONIA [None]
  - DIABETES MELLITUS [None]
  - CHRONIC OBSTRUCTIVE PULMONARY DISEASE [None]
  - RESPIRATORY DEPRESSION [None]
  - OVERDOSE [None]
  - CONVULSION [None]
